FAERS Safety Report 4492135-2 (Version None)
Quarter: 2004Q4

REPORT INFORMATION
  Report Type: 
  Country: None (occurrence: None)
  Receive Date: 20041103
  Receipt Date: 20040815
  Transmission Date: 20050328
  Serious: Yes (Hospitalization, Disabling)
  Sender: FDA-Public Use
  Company Number: CA-GLAXOSMITHKLINE-A0522388A

PATIENT
  Age: 33 Year
  Sex: Male

DRUGS (1)
  1. TRIZIVIR [Suspect]
     Indication: HIV INFECTION
     Route: 048
     Dates: start: 20040809, end: 20040822

REACTIONS (12)
  - BLISTER [None]
  - BURNING SENSATION [None]
  - CONDITION AGGRAVATED [None]
  - CONSTIPATION [None]
  - COUGH [None]
  - FATIGUE [None]
  - INFECTION [None]
  - NAUSEA [None]
  - PYREXIA [None]
  - RASH [None]
  - RESPIRATORY DISORDER [None]
  - VOMITING [None]
